FAERS Safety Report 6937063-5 (Version None)
Quarter: 2010Q3

REPORT INFORMATION
  Report Type: 
  Country: None (occurrence: None)
  Receive Date: 20100817
  Receipt Date: 20100805
  Transmission Date: 20110219
  Serious: Yes (Hospitalization)
  Sender: FDA-Public Use
  Company Number: 2010MA001458

PATIENT
  Age: 57 Year
  Sex: Female

DRUGS (1)
  1. PROPYLTHIOURACIL [Suspect]
     Indication: BASEDOW'S DISEASE

REACTIONS (8)
  - ANAL ULCER [None]
  - GASTRIC ULCER [None]
  - MICROCYTIC ANAEMIA [None]
  - OESOPHAGEAL ULCER [None]
  - PYREXIA [None]
  - STOMATITIS [None]
  - URTICARIA [None]
  - VASCULITIS [None]
